FAERS Safety Report 16782178 (Version 2)
Quarter: 2019Q3

REPORT INFORMATION
  Report Type: Spontaneous
  Country: US (occurrence: US)
  Receive Date: 20190906
  Receipt Date: 20190925
  Transmission Date: 20191005
  Serious: Yes (Hospitalization, Other)
  Sender: FDA-Public Use
  Company Number: US-PURDUE-GBR-2019-0069928

PATIENT
  Age: 12 Year
  Sex: Male
  Weight: 43 kg

DRUGS (7)
  1. METHADONE [Suspect]
     Active Substance: METHADONE HYDROCHLORIDE
     Indication: PROCEDURAL PAIN
     Dosage: 4 MG, Q12H (POD 1927)
     Route: 065
  2. HYDROMORPHONE HYDROCHLORIDE. [Suspect]
     Active Substance: HYDROMORPHONE HYDROCHLORIDE
     Dosage: 0.35 MG, PRN (POD 240, 0.35 MG/DOSE PRN)
     Route: 065
  3. FENTANYL. [Suspect]
     Active Substance: FENTANYL
     Indication: PROCEDURAL PAIN
     Dosage: 4 MCG/KG, PRN (MAX DOSE 4 MCG/KG/H, POD 02)
     Route: 065
  4. FENTANYL. [Suspect]
     Active Substance: FENTANYL
     Dosage: 1 MCG/KG, PRN (BOLUS DOSES 1 MCG/KG/DOSE PRN)
     Route: 040
  5. MORPHINE SULFATE. [Suspect]
     Active Substance: MORPHINE SULFATE
     Indication: PROCEDURAL PAIN
     Dosage: 2 MG, PRN (2 MG/DOSE Q2H PRN)
     Route: 065
  6. HYDROMORPHONE HYDROCHLORIDE. [Suspect]
     Active Substance: HYDROMORPHONE HYDROCHLORIDE
     Indication: POSTOPERATIVE ANALGESIA
     Dosage: 0.3 MG, UNK (POD 240, MAX DOSE 0.3 MG BASAL)
     Route: 065
  7. DEXMEDETOMIDINE. [Concomitant]
     Active Substance: DEXMEDETOMIDINE
     Indication: SEDATION
     Dosage: 1.5 MCG/KG, UNK (FROM 5 D PREOPERATIVELY-POD 34 AT A MAX DOSE 1.5 MCG/KG/H)
     Route: 065

REACTIONS (2)
  - Abdominal compartment syndrome [Recovered/Resolved]
  - Postoperative ileus [Recovered/Resolved]
